FAERS Safety Report 11641547 (Version 3)
Quarter: 2016Q1

REPORT INFORMATION
  Report Type: Spontaneous
  Country: US (occurrence: US)
  Receive Date: 20151019
  Receipt Date: 20160111
  Transmission Date: 20160525
  Serious: Yes (Other)
  Sender: FDA-Public Use
  Company Number: US-SHIRE-US201512734

PATIENT
  Age: 69 Year
  Sex: Male
  Weight: 74.83 kg

DRUGS (5)
  1. PENTASA [Suspect]
     Active Substance: MESALAMINE
     Indication: CROHN^S DISEASE
     Dosage: 500 MG CAPSULES (2 CAPSULES IN THE MORNING, 1 OR 2 AFTER LUNCH, 2 AFTER DINNER) , 3X/DAY:TID
     Route: 048
     Dates: start: 2010, end: 2015
  2. PENTASA [Suspect]
     Active Substance: MESALAMINE
     Dosage: 500 MG CAPSULE (2 CAPSUES IN THE MORNING, 1 OR 2 AFTER LUNCH, 2 AFTER DINNER) , 3X/DAY:TID
     Route: 048
     Dates: start: 201506
  3. VITAMIN B12 [Concomitant]
     Active Substance: CYANOCOBALAMIN
     Indication: VITAMIN SUPPLEMENTATION
     Dosage: 1000 MG, UNKNOWN
     Route: 065
     Dates: start: 20130302
  4. 5-AMINOSALICYLIC ACID [Suspect]
     Active Substance: MESALAMINE
     Indication: CROHN^S DISEASE
     Dosage: 1000 MG (500 MG, 2 TABLETS), 3X/DAY:TID
     Route: 048
     Dates: start: 20150901, end: 20150920
  5. CELEXA [Concomitant]
     Active Substance: CITALOPRAM HYDROBROMIDE
     Indication: AFFECTIVE DISORDER
     Dosage: 10 MG, UNKNOWN
     Route: 048
     Dates: start: 20140502

REACTIONS (5)
  - Malaise [Unknown]
  - Anal incontinence [Recovered/Resolved]
  - Crohn^s disease [Not Recovered/Not Resolved]
  - Product use issue [Not Recovered/Not Resolved]
  - Diarrhoea [Recovered/Resolved]

NARRATIVE: CASE EVENT DATE: 2010
